FAERS Safety Report 17251710 (Version 1)
Quarter: 2020Q1

REPORT INFORMATION
  Report Type: Spontaneous
  Country: US (occurrence: US)
  Receive Date: 20200108
  Receipt Date: 20200108
  Transmission Date: 20200409
  Serious: Yes (Disabling)
  Sender: FDA-Public Use
  Company Number: None

PATIENT
  Age: 69 Year
  Sex: Female
  Weight: 90 kg

DRUGS (18)
  1. TURMERIC [Concomitant]
     Active Substance: HERBALS\TURMERIC
  2. PRIMROSE EXTRACT. [Concomitant]
     Active Substance: PRIMROSE EXTRACT
  3. LISINOPRIL. [Concomitant]
     Active Substance: LISINOPRIL
  4. HYDROCHLOROTHIAZIDE. [Concomitant]
     Active Substance: HYDROCHLOROTHIAZIDE
  5. BENFOTIAMINE [Concomitant]
     Active Substance: BENFOTIAMINE
  6. POTASSIUM CHLORIDE. [Concomitant]
     Active Substance: POTASSIUM CHLORIDE
  7. ALPHA LIPOIC ACID [Concomitant]
     Active Substance: .ALPHA.-LIPOIC ACID
  8. PRESERVISION [Concomitant]
     Active Substance: MINERALS\VITAMINS
  9. SIMVASTATIN. [Concomitant]
     Active Substance: SIMVASTATIN
  10. CALCIUM [Concomitant]
     Active Substance: CALCIUM
  11. ASPIRIN. [Concomitant]
     Active Substance: ASPIRIN
  12. COQ10 [Concomitant]
     Active Substance: UBIDECARENONE
  13. DIGESTIVE ADVANTAGE DAILY PROBIOTIC [Concomitant]
     Active Substance: LACTOBACILLUS REUTERI
  14. AMOXICILLIN AND CLAVULANATE POTASSIUM [Suspect]
     Active Substance: AMOXICILLIN\CLAVULANATE POTASSIUM
     Indication: EAR PAIN
     Dosage: ?          QUANTITY:1 TABLET(S);?
     Route: 048
     Dates: start: 20200106, end: 20200106
  15. AMOXICILLIN AND CLAVULANATE POTASSIUM [Suspect]
     Active Substance: AMOXICILLIN\CLAVULANATE POTASSIUM
     Indication: NECK PAIN
     Dosage: ?          QUANTITY:1 TABLET(S);?
     Route: 048
     Dates: start: 20200106, end: 20200106
  16. LEVOTHYROXINE. [Concomitant]
     Active Substance: LEVOTHYROXINE
  17. BLUEBERRY EXTRACT [Concomitant]
  18. FENUGREEK [Concomitant]
     Active Substance: FENUGREEK SEED

REACTIONS (5)
  - Blood pressure increased [None]
  - Back pain [None]
  - Insomnia [None]
  - Pain [None]
  - Heart rate increased [None]

NARRATIVE: CASE EVENT DATE: 20200106
